FAERS Safety Report 8431172-X (Version None)
Quarter: 2012Q2

REPORT INFORMATION
  Report Type: 
  Country: None (occurrence: None)
  Receive Date: 20120612
  Receipt Date: 20120604
  Transmission Date: 20120825
  Serious: Yes (Hospitalization)
  Sender: FDA-Public Use
  Company Number: PHHY2012ZA047626

PATIENT
  Age: 58 Year
  Sex: Female

DRUGS (5)
  1. METFORMIN HCL [Suspect]
     Indication: WEIGHT DECREASED
  2. LIOTHYRONINE SODIUM [Suspect]
     Indication: WEIGHT DECREASED
  3. SIBUTRAMINE HYDROCHLORIDE MONOHYDRATE [Suspect]
     Indication: WEIGHT DECREASED
  4. HYDROCHLOROTHIAZIDE [Suspect]
     Indication: WEIGHT DECREASED
  5. FUCUS [Suspect]
     Indication: WEIGHT CONTROL
     Route: 048

REACTIONS (29)
  - CARDIAC FAILURE [None]
  - PLEURAL EFFUSION [None]
  - VENTRICULAR EXTRASYSTOLES [None]
  - CARDIOMYOPATHY [None]
  - HYPOTENSION [None]
  - DYSPNOEA [None]
  - EJECTION FRACTION DECREASED [None]
  - ASTHENIA [None]
  - UNRESPONSIVE TO STIMULI [None]
  - FEELING COLD [None]
  - HEPATIC CONGESTION [None]
  - CARDIAC FAILURE CONGESTIVE [None]
  - FLUID RETENTION [None]
  - ASCITES [None]
  - ARRHYTHMIA [None]
  - ATRIAL FIBRILLATION [None]
  - BLOOD THYROID STIMULATING HORMONE DECREASED [None]
  - MITRAL VALVE INCOMPETENCE [None]
  - SINUS TACHYCARDIA [None]
  - LIVER FUNCTION TEST ABNORMAL [None]
  - RALES [None]
  - HYPOKINESIA [None]
  - COLD SWEAT [None]
  - OEDEMA PERIPHERAL [None]
  - PULMONARY CONGESTION [None]
  - ELECTROCARDIOGRAM QT PROLONGED [None]
  - VENTRICULAR FIBRILLATION [None]
  - FATIGUE [None]
  - TRICUSPID VALVE INCOMPETENCE [None]
